FAERS Safety Report 7127990-0 (Version None)
Quarter: 2010Q4

REPORT INFORMATION
  Report Type: 
  Country: None (occurrence: None)
  Receive Date: 20101027
  Receipt Date: 20101013
  Transmission Date: 20110411
  Serious: No
  Sender: FDA-Public Use
  Company Number: CA-145086

PATIENT
  Sex: Female

DRUGS (1)
  1. WINRHO [Suspect]
     Indication: IDIOPATHIC THROMBOCYTOPENIC PURPURA
     Dosage: (6000 ?G INTRAVENOUS)
     Route: 042
     Dates: start: 20100827, end: 20100827

REACTIONS (7)
  - CHILLS [None]
  - HAEMOLYSIS [None]
  - HEADACHE [None]
  - MYALGIA [None]
  - NECK PAIN [None]
  - PYREXIA [None]
  - TACHYCARDIA [None]
